FAERS Safety Report 5908260-2 (Version None)
Quarter: 2008Q4

REPORT INFORMATION
  Report Type: 
  Country: None (occurrence: None)
  Receive Date: 20081006
  Receipt Date: 20080922
  Transmission Date: 20090506
  Serious: No
  Sender: FDA-Public Use
  Company Number: US-BAYER-200834120NA

PATIENT
  Age: 31 Year
  Sex: Male
  Weight: 88 kg

DRUGS (1)
  1. LEVITRA [Suspect]
     Indication: ERECTILE DYSFUNCTION
     Dates: start: 20080801, end: 20080101

REACTIONS (3)
  - ERECTILE DYSFUNCTION [None]
  - PENILE SIZE REDUCED [None]
  - SEMEN DISCOLOURATION [None]
